FAERS Safety Report 21855872 (Version 1)
Quarter: 2023Q1

REPORT INFORMATION
  Report Type: Spontaneous
  Country: US (occurrence: US)
  Receive Date: 20230112
  Receipt Date: 20230112
  Transmission Date: 20230417
  Serious: No
  Sender: FDA-Public Use
  Company Number: US-MYLANLABS-2022M1147834

PATIENT
  Sex: Female

DRUGS (3)
  1. XANAX [Interacting]
     Active Substance: ALPRAZOLAM
     Indication: Sleep disorder
     Dosage: 2 MILLIGRAM
     Route: 065
  2. XANAX [Interacting]
     Active Substance: ALPRAZOLAM
     Dosage: 5 MILLIGRAM
     Route: 065
  3. AMBIEN [Interacting]
     Active Substance: ZOLPIDEM TARTRATE
     Indication: Product used for unknown indication
     Dosage: UNK
     Route: 065

REACTIONS (6)
  - Drug tolerance [Unknown]
  - Drug interaction [Unknown]
  - Drug ineffective [Unknown]
  - Withdrawal syndrome [Unknown]
  - Wrong technique in product usage process [Unknown]
  - Off label use [Unknown]
